FAERS Safety Report 6031659-3 (Version None)
Quarter: 2009Q1

REPORT INFORMATION
  Report Type: 
  Country: None (occurrence: None)
  Receive Date: 20090107
  Receipt Date: 20090107
  Transmission Date: 20090719
  Serious: No
  Sender: FDA-Public Use
  Company Number: None

PATIENT
  Age: 30 Year
  Sex: Female
  Weight: 90.7194 kg

DRUGS (1)
  1. K-PHOS-LABELED-ACTUALLY- PHOSPHA [Suspect]
     Indication: HYPOPHOSPHATAEMIC RICKETS
     Dosage: 2 PILLS 4 X DAILY PO
     Route: 048

REACTIONS (2)
  - DRUG DISPENSING ERROR [None]
  - INTERCEPTED MEDICATION ERROR [None]
